FAERS Safety Report 18987986 (Version 1)
Quarter: 2021Q1

REPORT INFORMATION
  Report Type: Spontaneous
  Country: IT (occurrence: IT)
  Receive Date: 20210309
  Receipt Date: 20210309
  Transmission Date: 20210420
  Serious: Yes (Hospitalization)
  Sender: FDA-Public Use
  Company Number: NVSC2021IT048888

PATIENT
  Age: 85 Year
  Sex: Male

DRUGS (2)
  1. LANOXIN [Suspect]
     Active Substance: DIGOXIN
     Indication: CARDIAC FAILURE
     Dosage: 0.25 MG, QD
     Route: 048
     Dates: start: 20210213, end: 20210220
  2. DILATREND [Suspect]
     Active Substance: CARVEDILOL
     Indication: CARDIAC FIBRILLATION
     Dosage: 6.25 MG, QD
     Route: 048
     Dates: start: 20210213, end: 20210220

REACTIONS (2)
  - Toxicity to various agents [Recovering/Resolving]
  - Sinus bradycardia [Recovering/Resolving]

NARRATIVE: CASE EVENT DATE: 20210220
